FAERS Safety Report 17293790 (Version 1)
Quarter: 2020Q1

REPORT INFORMATION
  Report Type: Spontaneous
  Country: US (occurrence: US)
  Receive Date: 20200121
  Receipt Date: 20200121
  Transmission Date: 20200409
  Serious: No
  Sender: FDA-Public Use
  Company Number: US-SA-2020SA012947

PATIENT
  Age: 68 Year
  Sex: Male

DRUGS (5)
  1. DUPIXENT [Suspect]
     Active Substance: DUPILUMAB
     Indication: TYPE IIA HYPERLIPIDAEMIA
     Dosage: 300 MG, QOW
     Route: 058
     Dates: start: 20191005
  2. DUPIXENT [Suspect]
     Active Substance: DUPILUMAB
     Indication: NASAL CONGESTION
  3. DUPIXENT [Suspect]
     Active Substance: DUPILUMAB
     Indication: CHRONIC SINUSITIS
  4. DUPIXENT [Suspect]
     Active Substance: DUPILUMAB
     Indication: UPPER-AIRWAY COUGH SYNDROME
  5. DUPIXENT [Suspect]
     Active Substance: DUPILUMAB
     Indication: CHRONIC SINUSITIS

REACTIONS (2)
  - Product use in unapproved indication [Unknown]
  - Meniscus injury [Unknown]
